FAERS Safety Report 6326696-5 (Version None)
Quarter: 2009Q3

REPORT INFORMATION
  Report Type: 
  Country: None (occurrence: None)
  Receive Date: 20090825
  Receipt Date: 20090818
  Transmission Date: 20100115
  Serious: Yes (Hospitalization, Other)
  Sender: FDA-Public Use
  Company Number: PHHY2009CR33350

PATIENT
  Sex: Female

DRUGS (3)
  1. TRILEPTAL [Suspect]
     Dosage: 300 MG, BID
     Route: 048
     Dates: start: 20090201
  2. TRILEPTAL [Suspect]
     Dosage: 300 MG EVERY 8 HOURS
  3. LAMICTAL [Concomitant]
     Dosage: 12.5 MG DAILY
     Route: 048

REACTIONS (4)
  - ATTENTION DEFICIT/HYPERACTIVITY DISORDER [None]
  - BRAIN INJURY [None]
  - CEREBRAL ATROPHY [None]
  - PARTIAL SEIZURES [None]
